FAERS Safety Report 7248579-9 (Version None)
Quarter: 2011Q1

REPORT INFORMATION
  Report Type: 
  Country: None (occurrence: None)
  Receive Date: 20110128
  Receipt Date: 20101213
  Transmission Date: 20110831
  Serious: Yes (Other)
  Sender: FDA-Public Use
  Company Number: US-BAYER-2010-004626

PATIENT
  Sex: Female

DRUGS (3)
  1. ALEVE (CAPLET) [Suspect]
  2. ASPIRIN [Suspect]
     Dosage: DAILY DOSE 650 MG
     Dates: start: 19900101
  3. ASPIRIN [Suspect]
     Indication: THROMBOSIS PROPHYLAXIS
     Dosage: DAILY DOSE 1300 MG
     Dates: start: 19880101, end: 19900101

REACTIONS (2)
  - EROSIVE OESOPHAGITIS [None]
  - DYSPHAGIA [None]
